FAERS Safety Report 10412450 (Version 1)
Quarter: 2014Q3

REPORT INFORMATION
  Report Type: Spontaneous
  Country: US (occurrence: None)
  Receive Date: 20140820
  Receipt Date: 20140820
  Transmission Date: 20150326
  Serious: Yes (Hospitalization)
  Sender: FDA-Public Use
  Company Number: HA14-251-AE

PATIENT
  Age: 83 Year
  Sex: Female
  Weight: 56.25 kg

DRUGS (6)
  1. NORVASC [Concomitant]
     Active Substance: AMLODIPINE BESYLATE
  2. CALCIUM [Concomitant]
     Active Substance: CALCIUM
  3. LIPITOR [Concomitant]
     Active Substance: ATORVASTATIN CALCIUM
  4. SMZ/TMP TABLETS, USP 800MG/160MG (AMNEAL) [Suspect]
     Active Substance: SULFAMETHOXAZOLE\TRIMETHOPRIM
     Indication: INFECTION
     Dosage: 1 TABLET
     Route: 048
     Dates: start: 20140616, end: 20140622
  5. VITAMIN D [Concomitant]
     Active Substance: CHOLECALCIFEROL
  6. ATENOLOL. [Concomitant]
     Active Substance: ATENOLOL

REACTIONS (7)
  - Oral candidiasis [None]
  - Sleep disorder [None]
  - Decreased appetite [None]
  - Tricuspid valve incompetence [None]
  - Diastolic dysfunction [None]
  - Pericardial effusion [None]
  - Cerebrovascular accident [None]

NARRATIVE: CASE EVENT DATE: 20140617
